FAERS Safety Report 8540379-2 (Version None)
Quarter: 2012Q3

REPORT INFORMATION
  Report Type: 
  Country: None (occurrence: None)
  Receive Date: 20120713
  Receipt Date: 20120706
  Transmission Date: 20120928
  Serious: Yes (Other)
  Sender: FDA-Public Use
  Company Number: 2012032731

PATIENT
  Age: 14 Year
  Sex: Female

DRUGS (4)
  1. HIZENTRA [Suspect]
     Indication: IMMUNODEFICIENCY
     Dosage: 10 ML 2X/WEEK, 2 TIMES/WEEK, SUBCUTANEOUS
     Route: 058
     Dates: start: 20120503
  2. CEFUROXIM /00454602/ (CEFUROXIME SODIUM) [Concomitant]
  3. SINGULAIR [Concomitant]
  4. BECLOMETASONE /00212602/ (BECLOMETASONE DIPROPIONATE) [Concomitant]

REACTIONS (4)
  - SYNCOPE [None]
  - DIZZINESS [None]
  - FATIGUE [None]
  - NAUSEA [None]
